FAERS Safety Report 18586022 (Version 26)
Quarter: 2022Q2

REPORT INFORMATION
  Report Type: Spontaneous
  Country: GB (occurrence: GB)
  Receive Date: 20201207
  Receipt Date: 20220401
  Transmission Date: 20220721
  Serious: Yes (Life-Threatening, Hospitalization, Other)
  Sender: FDA-Public Use
  Company Number: GB-MYLANLABS-2020M1095340

PATIENT
  Age: 64 Year
  Sex: Male

DRUGS (190)
  1. SERTRALINE HYDROCHLORIDE [Suspect]
     Active Substance: SERTRALINE HYDROCHLORIDE
     Indication: Depressed mood
     Dosage: 40 MG, QD
     Route: 048
  2. SERTRALINE HYDROCHLORIDE [Suspect]
     Active Substance: SERTRALINE HYDROCHLORIDE
     Indication: Depressed mood
     Dosage: 150 MILLIGRAM
     Route: 048
  3. SERTRALINE HYDROCHLORIDE [Suspect]
     Active Substance: SERTRALINE HYDROCHLORIDE
     Indication: Schizophrenia
     Dosage: 40 MILLIGRAM, QD
     Route: 048
  4. SERTRALINE HYDROCHLORIDE [Suspect]
     Active Substance: SERTRALINE HYDROCHLORIDE
     Dosage: 150 MILLIGRAM
     Route: 048
  5. SERTRALINE HYDROCHLORIDE [Suspect]
     Active Substance: SERTRALINE HYDROCHLORIDE
     Dosage: 150 MILLIGRAM
     Route: 048
  6. SERTRALINE HYDROCHLORIDE [Suspect]
     Active Substance: SERTRALINE HYDROCHLORIDE
     Dosage: 40 MILLIGRAM, QD
     Route: 048
  7. SERTRALINE HYDROCHLORIDE [Suspect]
     Active Substance: SERTRALINE HYDROCHLORIDE
     Dosage: 15 MILLIGRAM
     Route: 048
  8. SERTRALINE HYDROCHLORIDE [Suspect]
     Active Substance: SERTRALINE HYDROCHLORIDE
     Dosage: 150 MG
     Route: 048
  9. SERTRALINE HYDROCHLORIDE [Suspect]
     Active Substance: SERTRALINE HYDROCHLORIDE
     Dosage: 150 MG
     Route: 048
  10. SERTRALINE HYDROCHLORIDE [Suspect]
     Active Substance: SERTRALINE HYDROCHLORIDE
     Dosage: 40 MG, DAILY (QD)
     Route: 048
  11. SERTRALINE HYDROCHLORIDE [Suspect]
     Active Substance: SERTRALINE HYDROCHLORIDE
     Dosage: 150 MILLIGRAM
     Route: 048
  12. SERTRALINE HYDROCHLORIDE [Suspect]
     Active Substance: SERTRALINE HYDROCHLORIDE
     Dosage: 40 MILLIGRAM, QD
     Route: 048
  13. SERTRALINE HYDROCHLORIDE [Suspect]
     Active Substance: SERTRALINE HYDROCHLORIDE
     Dosage: 150 MILLIGRAM
     Route: 048
  14. SIMVASTATIN [Suspect]
     Active Substance: SIMVASTATIN
     Indication: Hyperlipidaemia
     Dosage: 40 MILLIGRAM, QD
     Route: 048
  15. SIMVASTATIN [Suspect]
     Active Substance: SIMVASTATIN
     Dosage: 40 MILLIGRAM, QD
     Route: 048
  16. SIMVASTATIN [Suspect]
     Active Substance: SIMVASTATIN
     Dosage: 40 MILLIGRAM, QD
     Route: 048
  17. SIMVASTATIN [Suspect]
     Active Substance: SIMVASTATIN
     Dosage: 40 MILLIGRAM, QD
     Route: 048
  18. SIMVASTATIN [Suspect]
     Active Substance: SIMVASTATIN
     Dosage: 40 MILLIGRAM, QD
     Route: 048
  19. SIMVASTATIN [Suspect]
     Active Substance: SIMVASTATIN
     Dosage: 40 MILLIGRAM, QD
     Route: 048
  20. SIMVASTATIN [Suspect]
     Active Substance: SIMVASTATIN
     Dosage: 40 MILLIGRAM, QD
     Route: 048
  21. SIMVASTATIN [Suspect]
     Active Substance: SIMVASTATIN
     Dosage: 40 MILLIGRAM, QD
     Route: 048
  22. SIMVASTATIN [Suspect]
     Active Substance: SIMVASTATIN
     Dosage: 40 MILLIGRAM, QD
     Route: 048
  23. SIMVASTATIN [Suspect]
     Active Substance: SIMVASTATIN
     Dosage: 40 MILLIGRAM, QD
     Route: 048
  24. SIMVASTATIN [Suspect]
     Active Substance: SIMVASTATIN
     Dosage: 40 MILLIGRAM, QD
     Route: 048
  25. SIMVASTATIN [Suspect]
     Active Substance: SIMVASTATIN
     Dosage: 40 MILLIGRAM, QD
     Route: 048
  26. SIMVASTATIN [Suspect]
     Active Substance: SIMVASTATIN
     Dosage: 40 MILLIGRAM, QD
     Route: 048
  27. SIMVASTATIN [Suspect]
     Active Substance: SIMVASTATIN
     Dosage: 40 MILLIGRAM, QD
     Route: 048
  28. SIMVASTATIN [Suspect]
     Active Substance: SIMVASTATIN
     Dosage: 40 MILLIGRAM, QD
     Route: 048
  29. SIMVASTATIN [Suspect]
     Active Substance: SIMVASTATIN
     Dosage: 40 MILLIGRAM, QD
     Route: 048
  30. SIMVASTATIN [Suspect]
     Active Substance: SIMVASTATIN
     Dosage: 40 MILLIGRAM, QD
     Route: 048
  31. SIMVASTATIN [Suspect]
     Active Substance: SIMVASTATIN
     Dosage: 40 MILLIGRAM, QD
     Route: 048
  32. SIMVASTATIN [Suspect]
     Active Substance: SIMVASTATIN
     Indication: Hyperlipidaemia
     Dosage: 40 MILLIGRAM, QD
     Route: 048
  33. SIMVASTATIN [Suspect]
     Active Substance: SIMVASTATIN
     Dosage: 40 MG, DAILY
     Route: 048
  34. SIMVASTATIN [Suspect]
     Active Substance: SIMVASTATIN
     Dosage: 40 MG, DAILY
     Route: 048
  35. SIMVASTATIN [Suspect]
     Active Substance: SIMVASTATIN
     Dosage: 40 MG, DAILY
     Route: 048
  36. SIMVASTATIN [Suspect]
     Active Substance: SIMVASTATIN
     Dosage: 40 MG, DAILY
     Route: 048
  37. SIMVASTATIN [Suspect]
     Active Substance: SIMVASTATIN
     Dosage: 40 MG, DAILY
     Route: 048
  38. SIMVASTATIN [Suspect]
     Active Substance: SIMVASTATIN
     Dosage: 40 MG, DAILY
     Route: 048
  39. SIMVASTATIN [Suspect]
     Active Substance: SIMVASTATIN
     Dosage: 40 MG, DAILY
     Route: 048
  40. SIMVASTATIN [Suspect]
     Active Substance: SIMVASTATIN
     Dosage: 40 MG, DAILY
     Route: 048
  41. SIMVASTATIN [Suspect]
     Active Substance: SIMVASTATIN
     Dosage: 40 MG, DAILY
     Route: 048
  42. SIMVASTATIN [Suspect]
     Active Substance: SIMVASTATIN
     Dosage: 40 MG, DAILY
     Route: 048
  43. SIMVASTATIN [Suspect]
     Active Substance: SIMVASTATIN
     Dosage: 40 MG, DAILY
     Route: 048
  44. SIMVASTATIN [Suspect]
     Active Substance: SIMVASTATIN
     Dosage: 40 MG, DAILY
     Route: 048
  45. SIMVASTATIN [Suspect]
     Active Substance: SIMVASTATIN
     Dosage: 40 MG, DAILY
     Route: 048
  46. SIMVASTATIN [Suspect]
     Active Substance: SIMVASTATIN
     Dosage: 40 MG, DAILY
     Route: 048
  47. SIMVASTATIN [Suspect]
     Active Substance: SIMVASTATIN
     Dosage: 40 MG, DAILY
     Route: 048
  48. SIMVASTATIN [Suspect]
     Active Substance: SIMVASTATIN
     Dosage: 40 MG, DAILY (QD)
     Route: 048
  49. SIMVASTATIN [Suspect]
     Active Substance: SIMVASTATIN
     Dosage: 40 MG, DAILY (QD)
     Route: 048
  50. THIAMINE [Suspect]
     Active Substance: THIAMINE
     Indication: Vitamin B complex deficiency
     Dosage: 300 MG, QD
     Route: 048
  51. THIAMINE [Suspect]
     Active Substance: THIAMINE
     Dosage: 300 MG, QD
     Route: 048
  52. THIAMINE [Suspect]
     Active Substance: THIAMINE
     Dosage: 300 MG, QD
     Route: 048
  53. THIAMINE [Suspect]
     Active Substance: THIAMINE
     Dosage: 300 MG, QD
     Route: 048
  54. THIAMINE [Suspect]
     Active Substance: THIAMINE
     Dosage: 300 MG, QD
     Route: 048
  55. THIAMINE [Suspect]
     Active Substance: THIAMINE
     Dosage: 300 MG, QD
     Route: 048
  56. THIAMINE [Suspect]
     Active Substance: THIAMINE
     Dosage: 300 MG, QD
     Route: 048
  57. THIAMINE [Suspect]
     Active Substance: THIAMINE
     Dosage: 300 MG, QD
     Route: 048
  58. FOLIC ACID [Suspect]
     Active Substance: FOLIC ACID
     Indication: Blood folate decreased
     Dosage: 5 MILLIGRAM
     Route: 048
  59. FOLIC ACID [Suspect]
     Active Substance: FOLIC ACID
     Indication: Extrapyramidal disorder
     Dosage: 5 MG, QD ORAL SOLUTION
     Route: 048
  60. FOLIC ACID [Suspect]
     Active Substance: FOLIC ACID
     Indication: Blood folate decreased
     Dosage: FREQ:8 H;15 MILLIGRAM, Q8H (15MG, TID)
     Route: 048
  61. FOLIC ACID [Suspect]
     Active Substance: FOLIC ACID
     Dosage: 5 MILLIGRAM, TID (5 MG, (3X/DAY, 15 MILLIGRAM, QD) )
     Route: 048
  62. FOLIC ACID [Suspect]
     Active Substance: FOLIC ACID
     Dosage: 5 MILLIGRAM
     Route: 048
  63. FOLIC ACID [Suspect]
     Active Substance: FOLIC ACID
     Dosage: 15 MILLIGRAM, QD
     Route: 048
  64. FOLIC ACID [Suspect]
     Active Substance: FOLIC ACID
     Dosage: 15 MG, DAILY
     Route: 048
  65. FOLIC ACID [Suspect]
     Active Substance: FOLIC ACID
     Dosage: 15 MG, 1X/DAY
     Route: 048
  66. FOLIC ACID [Suspect]
     Active Substance: FOLIC ACID
     Dosage: 15 MG, 1X/DAY
     Route: 048
  67. FOLIC ACID [Suspect]
     Active Substance: FOLIC ACID
     Dosage: 45 MICROGRAM, QD
     Route: 048
  68. FOLIC ACID [Suspect]
     Active Substance: FOLIC ACID
     Dosage: 5 MG, 3X/DAY (TID)
     Route: 048
  69. FOLIC ACID [Suspect]
     Active Substance: FOLIC ACID
     Dosage: 5 MG, 3X/DAY (TID)
     Route: 048
  70. FOLIC ACID [Suspect]
     Active Substance: FOLIC ACID
     Dosage: 15 MG, 3X/DAY (Q8H)
     Route: 048
  71. FOLIC ACID [Suspect]
     Active Substance: FOLIC ACID
     Dosage: 15 MG, QD, (5 MG, TID (3X/DAY, 15 MG, QD)
     Route: 048
  72. FOLIC ACID [Suspect]
     Active Substance: FOLIC ACID
     Dosage: 5 MILLIGRAM
     Route: 048
  73. FOLIC ACID [Suspect]
     Active Substance: FOLIC ACID
     Dosage: 15 MG, QD, (5 MG, TID (3X/DAY, 15 MG, QD)
     Route: 048
  74. FOLIC ACID [Suspect]
     Active Substance: FOLIC ACID
     Dosage: 5 MILLIGRAM, TID (5 MG, (3X/DAY, 15 MILLIGRAM, QD)   )
  75. FOLIC ACID [Suspect]
     Active Substance: FOLIC ACID
     Dosage: 45 MICROGRAM, QD
     Route: 065
  76. FOLIC ACID [Suspect]
     Active Substance: FOLIC ACID
     Dosage: 5 MILLIGRAM, TID (5 MILLIGRAM, 3 TIMES A DAY )
     Route: 048
  77. FOLIC ACID [Suspect]
     Active Substance: FOLIC ACID
     Dosage: 45 MICROGRAM
  78. FOLIC ACID [Suspect]
     Active Substance: FOLIC ACID
     Dosage: 5 MILLIGRAM, QD
     Route: 048
  79. FOLIC ACID [Suspect]
     Active Substance: FOLIC ACID
     Dosage: 5 MILLIGRAM
     Route: 048
  80. FOLIC ACID [Suspect]
     Active Substance: FOLIC ACID
     Dosage: 5 MILLIGRAM, TID (5 MILLIGRAM, 3 TIMES A DAY )
     Route: 048
  81. FOLIC ACID [Suspect]
     Active Substance: FOLIC ACID
     Dosage: 5 MILLIGRAM, TID (5 MILLIGRAM, 3 TIMES A DAY )
     Route: 048
  82. FOLIC ACID [Suspect]
     Active Substance: FOLIC ACID
     Dosage: 15 MG, QD (5 MG, TID (3X/DAY, 15 MG, QD)
     Route: 048
  83. FOLIC ACID [Suspect]
     Active Substance: FOLIC ACID
     Dosage: 45 MILLIGRAM, QD (15 MILLIGRAM, 3 TIMES A DAY)
  84. FOLIC ACID [Suspect]
     Active Substance: FOLIC ACID
     Dosage: 5 MILLIGRAM, TID (5 MILLIGRAM, 3 TIMES A DAY )
     Route: 048
  85. FOLIC ACID [Suspect]
     Active Substance: FOLIC ACID
     Dosage: 5 MILLIGRAM, TID (5 MILLIGRAM, 3 TIMES A DAY )
     Route: 048
  86. FOLIC ACID [Suspect]
     Active Substance: FOLIC ACID
     Dosage: 15 MG, QD (5 MG, TID (3X/DAY, 15 MG, QD)
     Route: 048
  87. FOLIC ACID [Suspect]
     Active Substance: FOLIC ACID
     Dosage: 5 MILLIGRAM, TID (5 MILLIGRAM, 3 TIMES A DAY )
  88. FOLIC ACID [Suspect]
     Active Substance: FOLIC ACID
     Dosage: 45 MG, QD (5 MG, 3X/DAY, 15 MILLIGRAM, QD)
     Route: 048
  89. PROCYCLIDINE [Suspect]
     Active Substance: PROCYCLIDINE
     Indication: Extrapyramidal disorder
     Dosage: 15 MILLIGRAM, QD
     Route: 048
  90. PROCYCLIDINE [Suspect]
     Active Substance: PROCYCLIDINE
     Indication: Extrapyramidal disorder
     Dosage: 15 MILLIGRAM, QD (5 MG, 3X/DAY, 15 MILLIGRAM, QD)
     Route: 048
  91. PROCYCLIDINE [Suspect]
     Active Substance: PROCYCLIDINE
     Dosage: 15 MILLIGRAM, QD (5 MG, 3X/DAY, 15 MILLIGRAM, QD)
     Route: 065
  92. PROCYCLIDINE [Suspect]
     Active Substance: PROCYCLIDINE
     Dosage: 5 MILLIGRAM, QD (5 MG, 3X/DAY, 15 MILLIGRAM, QD)
     Route: 048
  93. PROCYCLIDINE [Suspect]
     Active Substance: PROCYCLIDINE
     Dosage: 15 MILLIGRAM, QD (5 MG, 3X/DAY, 15 MILLIGRAM, QD)
     Route: 048
  94. PROCYCLIDINE [Suspect]
     Active Substance: PROCYCLIDINE
     Dosage: 45 MG, QD (15 MG, QD (5 MG, 3X/DAY, 15 MG, QD)
     Route: 048
  95. PROCYCLIDINE [Suspect]
     Active Substance: PROCYCLIDINE
     Dosage: 45 MG, DAILY
     Route: 048
  96. PROCYCLIDINE [Suspect]
     Active Substance: PROCYCLIDINE
     Dosage: 45 MG, DAILY
     Route: 048
  97. PROCYCLIDINE [Suspect]
     Active Substance: PROCYCLIDINE
     Dosage: 40 MG, DAILY
     Route: 048
  98. PROCYCLIDINE [Suspect]
     Active Substance: PROCYCLIDINE
     Dosage: 15 MG, 3X/DAY
     Route: 048
  99. PROCYCLIDINE [Suspect]
     Active Substance: PROCYCLIDINE
     Dosage: 15 MG, 3X/DAY
     Route: 048
  100. PROCYCLIDINE [Suspect]
     Active Substance: PROCYCLIDINE
     Dosage: 45 MG, DAILY
     Route: 048
  101. PROCYCLIDINE [Suspect]
     Active Substance: PROCYCLIDINE
     Dosage: 15 MILLIGRAM, QD (5 MG, 3X/DAY, 15 MILLIGRAM, QD)
     Route: 048
  102. PROCYCLIDINE [Suspect]
     Active Substance: PROCYCLIDINE
     Dosage: 15 MG, QD (5 MG, 3X/DAY, 15 MILLIGRAM, QD)
     Route: 048
  103. PROCYCLIDINE [Suspect]
     Active Substance: PROCYCLIDINE
     Dosage: 5 MILLIGRAM, TID
     Route: 048
  104. PROCYCLIDINE [Suspect]
     Active Substance: PROCYCLIDINE
     Dosage: 15 MILLIGRAM, TID
     Route: 048
  105. PROCYCLIDINE [Suspect]
     Active Substance: PROCYCLIDINE
     Dosage: 40 MILLIGRAM, QD
     Route: 048
  106. PROCYCLIDINE [Suspect]
     Active Substance: PROCYCLIDINE
     Dosage: 15 MILLIGRAM, TID
     Route: 048
  107. PROCYCLIDINE [Suspect]
     Active Substance: PROCYCLIDINE
     Dosage: 15 MILLIGRAM, QD (5 MILLIGRAM, TID)
     Route: 048
  108. PROCYCLIDINE [Suspect]
     Active Substance: PROCYCLIDINE
     Dosage: 15 MG, QD (5 MG, 3X/DAY, 15 MILLIGRAM, QD)
     Route: 065
  109. PROCYCLIDINE [Suspect]
     Active Substance: PROCYCLIDINE
     Dosage: 15 MG, QD (5 MG, 3X/DAY, 15 MILLIGRAM, QD)
     Route: 065
  110. PROCYCLIDINE [Suspect]
     Active Substance: PROCYCLIDINE
     Dosage: 5 MILLIGRAM, QD
     Route: 048
  111. PROCYCLIDINE [Suspect]
     Active Substance: PROCYCLIDINE
     Dosage: 45 MILLIGRAM, QD (15 MILLIGRAM, TID)
     Route: 048
  112. PROCYCLIDINE [Suspect]
     Active Substance: PROCYCLIDINE
     Dosage: 5 MILLIGRAM, QD (5 MG, 3X/DAY, 15 MILLIGRAM, QD)
     Route: 048
  113. PROCYCLIDINE [Suspect]
     Active Substance: PROCYCLIDINE
     Dosage: 45 MG, QD (15 MG, QD (5 MG, 3X/DAY, 15 MG, QD)
     Route: 048
  114. PROCYCLIDINE [Suspect]
     Active Substance: PROCYCLIDINE
     Dosage: 15 MILLIGRAM, QD (5 MG, 3X/DAY, 15 MILLIGRAM, QD)
     Route: 048
  115. PROCYCLIDINE [Suspect]
     Active Substance: PROCYCLIDINE
     Dosage: 15 MILLIGRAM, QD (5 MILLIGRAM, QD (5 MG, 3X/DAY, 15 MILLIGRAM, QD))
     Route: 048
  116. PROCYCLIDINE [Suspect]
     Active Substance: PROCYCLIDINE
     Dosage: 5 MG, 3X/DAY, 15 MILLIGRAM, QD
     Route: 048
  117. PROCYCLIDINE [Suspect]
     Active Substance: PROCYCLIDINE
     Dosage: 15 MILLIGRAM, QD (5 MG, 3X/DAY, 15 MILLIGRAM, QD)
     Route: 048
  118. PROCYCLIDINE [Suspect]
     Active Substance: PROCYCLIDINE
     Dosage: 5 MILLIGRAM, TID (5 MG, 3X/DAY, 15 MILLIGRAM, QD)
     Route: 048
  119. CLOZARIL [Suspect]
     Active Substance: CLOZAPINE
     Indication: Schizophrenia
     Dosage: 75 MILLIGRAM, QD
     Route: 048
     Dates: start: 20090819, end: 202011
  120. CLOZARIL [Suspect]
     Active Substance: CLOZAPINE
     Indication: Extrapyramidal disorder
     Dosage: 75 MILLIGRAM, QD
     Route: 048
     Dates: start: 20090819, end: 202011
  121. CLOZARIL [Suspect]
     Active Substance: CLOZAPINE
     Indication: Transient ischaemic attack
     Dosage: UNK
     Route: 048
     Dates: start: 20090819, end: 202011
  122. CLOZARIL [Suspect]
     Active Substance: CLOZAPINE
     Indication: Schizophrenia
     Dosage: UNK
     Route: 048
  123. CLOZARIL [Suspect]
     Active Substance: CLOZAPINE
     Dosage: 75 MILLIGRAM, QD (ONCE A DAY)
     Route: 048
     Dates: start: 20090819, end: 202101
  124. CLOZARIL [Suspect]
     Active Substance: CLOZAPINE
     Dosage: 75 MILLIGRAM, QD (75 MG, QD)
     Route: 048
     Dates: start: 20090619, end: 202011
  125. CLOZARIL [Suspect]
     Active Substance: CLOZAPINE
     Dosage: 75 MILLIGRAM, QD (75 MG, QD)
     Route: 048
     Dates: start: 20090619, end: 202011
  126. CLOZARIL [Suspect]
     Active Substance: CLOZAPINE
     Dosage: 75 MG, 1X/DAY
     Route: 048
     Dates: start: 20090619, end: 202101
  127. CLOZARIL [Suspect]
     Active Substance: CLOZAPINE
     Dosage: 75 MILLIGRAM, QD
     Route: 048
     Dates: start: 20200819
  128. CLOZARIL [Suspect]
     Active Substance: CLOZAPINE
     Route: 048
     Dates: start: 20090819, end: 202011
  129. CLOZARIL [Suspect]
     Active Substance: CLOZAPINE
     Route: 065
  130. CLOZARIL [Suspect]
     Active Substance: CLOZAPINE
     Route: 048
  131. CLOZARIL [Suspect]
     Active Substance: CLOZAPINE
     Route: 065
  132. CLOZARIL [Suspect]
     Active Substance: CLOZAPINE
     Dosage: 1 DOSAGE FORM, QD
     Route: 048
     Dates: start: 20090819, end: 202011
  133. CLOZARIL [Suspect]
     Active Substance: CLOZAPINE
     Route: 048
     Dates: start: 20090819, end: 202011
  134. CLOZARIL [Suspect]
     Active Substance: CLOZAPINE
     Route: 048
  135. CLOZARIL [Suspect]
     Active Substance: CLOZAPINE
     Route: 065
  136. CLOPIDOGREL BISULFATE [Suspect]
     Active Substance: CLOPIDOGREL BISULFATE
     Indication: Transient ischaemic attack
     Dosage: 75 MILLIGRAM, QD
     Route: 048
  137. CLOPIDOGREL BISULFATE [Suspect]
     Active Substance: CLOPIDOGREL BISULFATE
     Indication: Schizophrenia
     Dosage: 75 MILLIGRAM, QD
     Route: 048
     Dates: start: 20090819, end: 202011
  138. CLOPIDOGREL BISULFATE [Suspect]
     Active Substance: CLOPIDOGREL BISULFATE
     Dosage: 75 MILLIGRAM, QD
     Route: 048
     Dates: start: 20090819, end: 202011
  139. CLOPIDOGREL BISULFATE [Suspect]
     Active Substance: CLOPIDOGREL BISULFATE
     Dosage: 75 MILLIGRAM, QD
     Route: 048
     Dates: start: 20090819
  140. CLOPIDOGREL BISULFATE [Suspect]
     Active Substance: CLOPIDOGREL BISULFATE
     Dosage: 75 MILLIGRAM, QD (15MG/ML)
     Route: 048
     Dates: end: 202011
  141. CLOPIDOGREL BISULFATE [Suspect]
     Active Substance: CLOPIDOGREL BISULFATE
  142. CLOPIDOGREL BISULFATE [Suspect]
     Active Substance: CLOPIDOGREL BISULFATE
     Dosage: 75 MILLIGRAM, QD
     Route: 048
  143. CLOPIDOGREL BISULFATE [Suspect]
     Active Substance: CLOPIDOGREL BISULFATE
     Dosage: 75 MILLIGRAM, QD (75 MG, 1X/DAY)
     Route: 048
     Dates: start: 202011
  144. CLOPIDOGREL BISULFATE [Suspect]
     Active Substance: CLOPIDOGREL BISULFATE
     Dosage: 75 MILLIGRAM, QD
     Route: 048
     Dates: start: 20200819, end: 202011
  145. CLOPIDOGREL BISULFATE [Suspect]
     Active Substance: CLOPIDOGREL BISULFATE
     Dosage: 75 MILLIGRAM, QD
     Route: 065
  146. CLOPIDOGREL BISULFATE [Suspect]
     Active Substance: CLOPIDOGREL BISULFATE
     Dosage: 75 MILLIGRAM, QD
     Route: 048
     Dates: start: 20090819
  147. CLOPIDOGREL BISULFATE [Suspect]
     Active Substance: CLOPIDOGREL BISULFATE
     Dosage: 75 MILLIGRAM, QD
     Route: 048
  148. CLOPIDOGREL BISULFATE [Suspect]
     Active Substance: CLOPIDOGREL BISULFATE
     Dosage: 75 MILLIGRAM, QD
     Route: 048
  149. CLOPIDOGREL BISULFATE [Suspect]
     Active Substance: CLOPIDOGREL BISULFATE
     Dosage: 75 MG, QD (75 MG, 1X/DAY )
     Route: 048
     Dates: start: 202011, end: 202011
  150. CLOPIDOGREL BISULFATE [Suspect]
     Active Substance: CLOPIDOGREL BISULFATE
     Dosage: 75 MILLIGRAM, QD/NOV-2020
     Route: 048
     Dates: end: 202011
  151. CLOPIDOGREL BISULFATE [Suspect]
     Active Substance: CLOPIDOGREL BISULFATE
     Dosage: 75 MILLIGRAM, QD
     Route: 065
  152. CLOPIDOGREL BISULFATE [Suspect]
     Active Substance: CLOPIDOGREL BISULFATE
     Dosage: 75 MILLIGRAM, QD
     Route: 065
  153. CLOPIDOGREL [Suspect]
     Active Substance: CLOPIDOGREL BISULFATE
     Indication: Schizophrenia
     Dosage: 75 MG, 1X/DAY
     Route: 048
     Dates: start: 20200819, end: 202011
  154. CLOPIDOGREL [Suspect]
     Active Substance: CLOPIDOGREL BISULFATE
     Indication: Transient ischaemic attack
     Dosage: 75 MG, DAILY
     Route: 048
  155. CLOPIDOGREL BISULFATE [Suspect]
     Active Substance: CLOPIDOGREL BISULFATE
     Indication: Transient ischaemic attack
     Dosage: 75 MILLIGRAM, QD
     Route: 048
     Dates: start: 20200819, end: 202011
  156. CLOPIDOGREL BISULFATE [Suspect]
     Active Substance: CLOPIDOGREL BISULFATE
     Indication: Schizophrenia
     Dosage: 75 MILLIGRAM, QD
     Route: 048
  157. CLOPIDOGREL BISULFATE [Suspect]
     Active Substance: CLOPIDOGREL BISULFATE
     Dosage: 75 MILLIGRAM, QD
     Route: 048
  158. CLOPIDOGREL BISULFATE [Suspect]
     Active Substance: CLOPIDOGREL BISULFATE
     Dosage: 75 MILLIGRAM, QD
     Route: 048
  159. THIAMINE HYDROCHLORIDE [Suspect]
     Active Substance: THIAMINE HYDROCHLORIDE
     Indication: Vitamin B complex deficiency
     Dosage: 300 MILLIGRAM, QD
     Route: 048
  160. THIAMINE HYDROCHLORIDE [Suspect]
     Active Substance: THIAMINE HYDROCHLORIDE
     Dosage: 300 MILLIGRAM, QD
     Route: 048
  161. THIAMINE HYDROCHLORIDE [Suspect]
     Active Substance: THIAMINE HYDROCHLORIDE
     Dosage: 300 MILLIGRAM, QD
     Route: 048
  162. THIAMINE HYDROCHLORIDE [Suspect]
     Active Substance: THIAMINE HYDROCHLORIDE
     Dosage: 300 MILLIGRAM, QD
     Route: 048
  163. THIAMINE HYDROCHLORIDE [Suspect]
     Active Substance: THIAMINE HYDROCHLORIDE
     Dosage: 300 MILLIGRAM, QD
     Route: 048
  164. THIAMINE HYDROCHLORIDE [Suspect]
     Active Substance: THIAMINE HYDROCHLORIDE
     Dosage: 300 MILLIGRAM, QD
     Route: 048
  165. THIAMINE HYDROCHLORIDE [Suspect]
     Active Substance: THIAMINE HYDROCHLORIDE
     Dosage: 300 MILLIGRAM, QD
     Route: 048
  166. THIAMINE HYDROCHLORIDE [Suspect]
     Active Substance: THIAMINE HYDROCHLORIDE
  167. THIAMINE HYDROCHLORIDE [Suspect]
     Active Substance: THIAMINE HYDROCHLORIDE
     Dosage: 300 MILLIGRAM, QD
     Route: 048
  168. THIAMINE HYDROCHLORIDE [Suspect]
     Active Substance: THIAMINE HYDROCHLORIDE
     Dosage: 300 MILLIGRAM, QD
     Route: 048
  169. THIAMINE HYDROCHLORIDE [Suspect]
     Active Substance: THIAMINE HYDROCHLORIDE
     Dosage: 300 MILLIGRAM, QD
     Route: 048
  170. THIAMINE HYDROCHLORIDE [Suspect]
     Active Substance: THIAMINE HYDROCHLORIDE
     Dosage: 300 MILLIGRAM, QD
     Route: 048
  171. THIAMINE HYDROCHLORIDE [Suspect]
     Active Substance: THIAMINE HYDROCHLORIDE
     Dosage: 300 MILLIGRAM, QD
     Route: 048
  172. THIAMINE HYDROCHLORIDE [Suspect]
     Active Substance: THIAMINE HYDROCHLORIDE
     Dosage: 300 MILLIGRAM, QD
     Route: 048
  173. THIAMINE HYDROCHLORIDE [Suspect]
     Active Substance: THIAMINE HYDROCHLORIDE
     Dosage: 300 MILLIGRAM, QD
     Route: 048
  174. THIAMINE HYDROCHLORIDE [Suspect]
     Active Substance: THIAMINE HYDROCHLORIDE
     Dosage: 300 MILLIGRAM, QD
     Route: 048
  175. THIAMINE HYDROCHLORIDE [Suspect]
     Active Substance: THIAMINE HYDROCHLORIDE
     Dosage: 300 MILLIGRAM, QD
     Route: 048
  176. THIAMINE HYDROCHLORIDE [Suspect]
     Active Substance: THIAMINE HYDROCHLORIDE
     Dosage: 300 MILLIGRAM, QD
     Route: 048
  177. THIAMINE HYDROCHLORIDE [Suspect]
     Active Substance: THIAMINE HYDROCHLORIDE
     Dosage: 300 MILLIGRAM, QD
     Route: 048
  178. THIAMINE HYDROCHLORIDE [Suspect]
     Active Substance: THIAMINE HYDROCHLORIDE
     Dosage: 300 MILLIGRAM, QD
     Route: 048
  179. THIAMINE HYDROCHLORIDE [Suspect]
     Active Substance: THIAMINE HYDROCHLORIDE
     Dosage: 300 MILLIGRAM, QD
     Route: 048
  180. THIAMINE HYDROCHLORIDE [Suspect]
     Active Substance: THIAMINE HYDROCHLORIDE
     Dosage: 300 MILLIGRAM, QD
     Route: 048
  181. THIAMINE HYDROCHLORIDE [Suspect]
     Active Substance: THIAMINE HYDROCHLORIDE
     Dosage: 300 MILLIGRAM, QD
     Route: 048
  182. THIAMINE HYDROCHLORIDE [Suspect]
     Active Substance: THIAMINE HYDROCHLORIDE
     Dosage: 300 MILLIGRAM, QD
     Route: 048
  183. THIAMINE HYDROCHLORIDE [Suspect]
     Active Substance: THIAMINE HYDROCHLORIDE
     Dosage: 300 MILLIGRAM, QD
     Route: 048
  184. THIAMINE HYDROCHLORIDE [Suspect]
     Active Substance: THIAMINE HYDROCHLORIDE
     Dosage: 300 MILLIGRAM, QD
     Route: 048
  185. THIAMINE HYDROCHLORIDE [Suspect]
     Active Substance: THIAMINE HYDROCHLORIDE
     Dosage: 300 MILLIGRAM, QD
     Route: 048
  186. SERTRALINE [Suspect]
     Active Substance: SERTRALINE HYDROCHLORIDE
     Indication: Depressed mood
     Dosage: 40 MILLIGRAM, QD
     Route: 048
  187. SERTRALINE [Suspect]
     Active Substance: SERTRALINE HYDROCHLORIDE
     Dosage: 150 MILLIGRAM
     Route: 048
  188. SERTRALINE [Suspect]
     Active Substance: SERTRALINE HYDROCHLORIDE
     Dosage: 15 MILLIGRAM
     Route: 048
  189. SERTRALINE [Suspect]
     Active Substance: SERTRALINE HYDROCHLORIDE
     Dosage: 40 MILLIGRAM, QD
     Route: 048
  190. SERTRALINE [Suspect]
     Active Substance: SERTRALINE HYDROCHLORIDE
     Dosage: 15 MILLIGRAM
     Route: 048

REACTIONS (8)
  - Product dose omission issue [Unknown]
  - Off label use [Unknown]
  - Product use issue [Unknown]
  - Fall [Unknown]
  - Medication error [Unknown]
  - Intentional product misuse [Unknown]
  - Blood folate decreased [Unknown]
  - Vitamin B complex deficiency [Unknown]

NARRATIVE: CASE EVENT DATE: 20201106
